FAERS Safety Report 4807093-8 (Version None)
Quarter: 2005Q4

REPORT INFORMATION
  Report Type: 
  Country: None (occurrence: None)
  Receive Date: 20051024
  Receipt Date: 20051019
  Transmission Date: 20060501
  Serious: Yes (Hospitalization)
  Sender: FDA-Public Use
  Company Number: US-GLAXOSMITHKLINE-A0578777A

PATIENT
  Age: 53 Year
  Sex: Female

DRUGS (6)
  1. WELLBUTRIN [Suspect]
     Route: 048
  2. WELLBUTRIN [Suspect]
     Route: 048
  3. DEPAKOTE [Concomitant]
  4. TOPAMAX [Concomitant]
  5. LODINE [Concomitant]
  6. RESTORIL [Concomitant]

REACTIONS (4)
  - BIPOLAR DISORDER [None]
  - CRYING [None]
  - DEPRESSION [None]
  - DRUG INEFFECTIVE [None]
